FAERS Safety Report 25575074 (Version 1)
Quarter: 2025Q3

REPORT INFORMATION
  Report Type: Other
  Country: GB (occurrence: GB)
  Receive Date: 20250718
  Receipt Date: 20250718
  Transmission Date: 20251020
  Serious: Yes (Other)
  Sender: GLENMARK
  Company Number: None

PATIENT
  Sex: Female

DRUGS (1)
  1. EZETIMIBE [Suspect]
     Active Substance: EZETIMIBE
     Indication: Blood cholesterol increased
     Dosage: 10 MILLIGRAM, OD (10MG DAILY)
     Route: 065

REACTIONS (2)
  - Muscle spasms [Not Recovered/Not Resolved]
  - Limb discomfort [Unknown]

NARRATIVE: CASE EVENT DATE: 20250526
